FAERS Safety Report 20351879 (Version 1)
Quarter: 2022Q1

REPORT INFORMATION
  Report Type: Spontaneous
  Country: US (occurrence: None)
  Receive Date: 20220118
  Receipt Date: 20220118
  Transmission Date: 20220423
  Serious: Yes (Hospitalization)
  Sender: FDA-Public Use
  Company Number: None

PATIENT
  Age: 76 Year
  Sex: Male
  Weight: 98.1 kg

DRUGS (4)
  1. NIVOLUMAB [Suspect]
     Active Substance: NIVOLUMAB
     Indication: Oesophageal adenocarcinoma
     Dosage: FREQUENCY : EVERY OTHER WEEK;?
     Route: 042
  2. LEUCOVORIN [Suspect]
     Active Substance: LEUCOVORIN
  3. FLUOROURACIL [Suspect]
     Active Substance: FLUOROURACIL
  4. OXALIPLATIN [Suspect]
     Active Substance: OXALIPLATIN

REACTIONS (3)
  - Malaise [None]
  - Ischaemic stroke [None]
  - Cerebrovascular accident [None]

NARRATIVE: CASE EVENT DATE: 20220116
